FAERS Safety Report 6357585-8 (Version None)
Quarter: 2009Q3

REPORT INFORMATION
  Report Type: 
  Country: None (occurrence: None)
  Receive Date: 20090916
  Receipt Date: 20090908
  Transmission Date: 20100115
  Serious: Yes (Other)
  Sender: FDA-Public Use
  Company Number: PHHY2009BR24184

PATIENT
  Age: 66 Year
  Sex: Male
  Weight: 85 kg

DRUGS (6)
  1. DIOVAN [Suspect]
     Indication: HYPERTENSION
     Dosage: 1 TABLET A DAY
     Route: 048
     Dates: start: 19990101
  2. DIOVAN [Suspect]
     Dosage: 1 TABLET A DAY
     Route: 048
     Dates: start: 20020101
  3. DIOVAN [Suspect]
     Dosage: 1 TABLET EVERY OTHER DAY
     Route: 048
  4. DIOVAN [Suspect]
     Dosage: 320 MG, QD
     Route: 048
     Dates: start: 20090615
  5. AMLODIPINE BESYLATE [Concomitant]
     Indication: HYPERTENSION
     Dosage: 1 TABLET A DAY
     Route: 048
  6. AMLODIPINE BESYLATE [Concomitant]
     Dosage: 10 MG

REACTIONS (8)
  - BLOOD PRESSURE SYSTOLIC INCREASED [None]
  - DRUG EFFECT DECREASED [None]
  - EMOTIONAL DISORDER [None]
  - HYPERTENSION [None]
  - IMPAIRED WORK ABILITY [None]
  - METABOLIC DISORDER [None]
  - OVERWEIGHT [None]
  - STRESS [None]
